FAERS Safety Report 8889449 (Version 1)
Quarter: 2012Q4

REPORT INFORMATION
  Report Type: Spontaneous
  Country: US (occurrence: None)
  Receive Date: 20121102
  Receipt Date: 20121102
  Transmission Date: 20130627
  Serious: Yes (Other)
  Sender: FDA-Public Use
  Company Number: None

PATIENT
  Age: 44 Year
  Sex: Female

DRUGS (1)
  1. COPAXONE [Suspect]
     Indication: MS
     Route: 058
     Dates: start: 20120712, end: 20121019

REACTIONS (4)
  - Injection site reaction [None]
  - Injection site erythema [None]
  - Injection site swelling [None]
  - Injection site mass [None]
